FAERS Safety Report 16443542 (Version 1)
Quarter: 2019Q2

REPORT INFORMATION
  Report Type: Spontaneous
  Country: NL (occurrence: NL)
  Receive Date: 20190618
  Receipt Date: 20190618
  Transmission Date: 20190711
  Serious: Yes (Hospitalization)
  Sender: FDA-Public Use
  Company Number: NL-TEVA-2019-NL-1064175

PATIENT
  Age: 19 Year
  Sex: Female

DRUGS (2)
  1. CYCLOSPORINE. [Concomitant]
     Active Substance: CYCLOSPORINE
     Indication: PROPHYLAXIS AGAINST GRAFT VERSUS HOST DISEASE
     Route: 065
  2. METHOTREXATE. [Suspect]
     Active Substance: METHOTREXATE
     Indication: ACUTE UNDIFFERENTIATED LEUKAEMIA
     Dosage: ADMINISTERED 40 DAYS AND 12 DAYS PRIOR TO PRESENTATION
     Route: 037

REACTIONS (1)
  - Toxic leukoencephalopathy [Recovered/Resolved]
